FAERS Safety Report 4619146-8 (Version None)
Quarter: 2005Q1

REPORT INFORMATION
  Report Type: 
  Country: None (occurrence: None)
  Receive Date: 20050325
  Receipt Date: 20041124
  Transmission Date: 20050727
  Serious: Yes (Death)
  Sender: FDA-Public Use
  Company Number: SE-GLAXOSMITHKLINE-B0358842A

PATIENT
  Age: 39 Year
  Sex: Male

DRUGS (1)
  1. IMIGRAN [Suspect]
     Indication: HEADACHE
     Route: 058
     Dates: start: 20041123, end: 20041123

REACTIONS (11)
  - BODY TEMPERATURE INCREASED [None]
  - BRAIN OEDEMA [None]
  - CEREBELLAR INFARCTION [None]
  - DEPRESSED LEVEL OF CONSCIOUSNESS [None]
  - ENCEPHALOMALACIA [None]
  - GENERAL PHYSICAL HEALTH DETERIORATION [None]
  - MENINGITIS [None]
  - NAUSEA [None]
  - NECK PAIN [None]
  - NO REACTION ON PREVIOUS EXPOSURE TO DRUG [None]
  - VOMITING [None]
